FAERS Safety Report 7996063-7 (Version None)
Quarter: 2011Q4

REPORT INFORMATION
  Report Type: 
  Country: None (occurrence: None)
  Receive Date: 20111220
  Receipt Date: 20111209
  Transmission Date: 20120403
  Serious: Yes (Other)
  Sender: FDA-Public Use
  Company Number: PHHY2011CH107085

PATIENT
  Sex: Female

DRUGS (4)
  1. SPIRIVA [Concomitant]
  2. SYMBICORT [Concomitant]
  3. CANDESARTAN CILEXETIL [Concomitant]
  4. ONBREZ [Suspect]
     Indication: CHRONIC OBSTRUCTIVE PULMONARY DISEASE
     Dates: start: 20111129, end: 20111204

REACTIONS (5)
  - ESSENTIAL HYPERTENSION [None]
  - BLOOD PRESSURE INCREASED [None]
  - HYPERTENSION [None]
  - CHRONIC OBSTRUCTIVE PULMONARY DISEASE [None]
  - ASTHMA [None]
